FAERS Safety Report 9408632 (Version 1)
Quarter: 2013Q3

REPORT INFORMATION
  Report Type: Spontaneous
  Country: US (occurrence: US)
  Receive Date: 20130718
  Receipt Date: 20130718
  Transmission Date: 20140515
  Serious: No
  Sender: FDA-Public Use
  Company Number: US-PFIZER INC-2013210029

PATIENT
  Age: 52 Year
  Sex: Male
  Weight: 106.58 kg

DRUGS (3)
  1. NEURONTIN [Suspect]
     Indication: POST HERPETIC NEURALGIA
     Dosage: 300 MG, 3X/DAY
     Route: 048
  2. NEURONTIN [Suspect]
     Dosage: 600 MG, 3X/DAY
     Route: 048
  3. THEOPHYLLINE [Concomitant]
     Indication: ASTHMA
     Dosage: 300 MG, 3X/DAY

REACTIONS (1)
  - Drug ineffective [Unknown]
